FAERS Safety Report 9300546 (Version 1)
Quarter: 2013Q2

REPORT INFORMATION
  Report Type: Spontaneous
  Country: US (occurrence: US)
  Receive Date: 20130521
  Receipt Date: 20130521
  Transmission Date: 20140414
  Serious: Yes (Death)
  Sender: FDA-Public Use
  Company Number: US-PFIZER INC-2013154216

PATIENT
  Age: 67 Year
  Sex: Female

DRUGS (9)
  1. XELJANZ [Suspect]
     Indication: RHEUMATOID ARTHRITIS
     Dosage: 5 MG, 2X/DAY
     Route: 048
     Dates: start: 20130401, end: 20130425
  2. VITAMIN D [Concomitant]
     Dosage: 1000 IU
  3. CALCIUM [Concomitant]
     Dosage: 500 MG
  4. FLAXSEED OIL [Concomitant]
     Dosage: UNK
  5. PREDNISONE [Concomitant]
     Dosage: 5 MG
  6. PRILOSEC [Concomitant]
     Dosage: 10 MG
  7. TUSSIONEX PENNKINETIC [Concomitant]
     Dosage: UNK
     Route: 048
  8. NASONEX [Concomitant]
     Dosage: 50/80MCG
     Route: 045
  9. MULTIVITAMINS [Concomitant]
     Dosage: UNK

REACTIONS (1)
  - Death [Fatal]
